FAERS Safety Report 11329344 (Version 1)
Quarter: 2015Q3

REPORT INFORMATION
  Report Type: Spontaneous
  Country: DE (occurrence: DE)
  Receive Date: 20150803
  Receipt Date: 20150803
  Transmission Date: 20151125
  Serious: Yes (Hospitalization)
  Sender: FDA-Public Use
  Company Number: DE-DRREDDYS-GER/GER/15/0049687

PATIENT
  Sex: Female

DRUGS (22)
  1. SOLIAN [Interacting]
     Active Substance: AMISULPRIDE
     Route: 048
     Dates: start: 20110118
  2. SOLIAN [Interacting]
     Active Substance: AMISULPRIDE
     Route: 048
     Dates: start: 20110122, end: 20110125
  3. LORAZEPAM. [Concomitant]
     Active Substance: LORAZEPAM
     Dates: start: 20110104, end: 20110117
  4. LORAZEPAM. [Concomitant]
     Active Substance: LORAZEPAM
     Dates: start: 20110118, end: 20110121
  5. ABILIFY [Interacting]
     Active Substance: ARIPIPRAZOLE
     Route: 048
     Dates: start: 20110128, end: 20110204
  6. LORAZEPAM. [Concomitant]
     Active Substance: LORAZEPAM
     Dates: start: 20101229
  7. QUETIAPIN AL [Concomitant]
     Dates: start: 20110126
  8. CITALOPRAM [Interacting]
     Active Substance: CITALOPRAM HYDROBROMIDE
     Route: 048
     Dates: start: 20110110, end: 20110205
  9. HALDOL [Interacting]
     Active Substance: HALOPERIDOL
     Indication: PRODUCT USED FOR UNKNOWN INDICATION
     Route: 048
     Dates: start: 20101226
  10. HALDOL [Interacting]
     Active Substance: HALOPERIDOL
     Route: 048
     Dates: start: 20101229, end: 20110104
  11. BIPERIDEN [Concomitant]
     Active Substance: BIPERIDEN
     Indication: PRODUCT USED FOR UNKNOWN INDICATION
     Route: 048
     Dates: start: 20110104, end: 20110131
  12. CITALOPRAM [Interacting]
     Active Substance: CITALOPRAM HYDROBROMIDE
     Route: 048
     Dates: start: 20101229, end: 20110109
  13. SOLIAN [Interacting]
     Active Substance: AMISULPRIDE
     Indication: PRODUCT USED FOR UNKNOWN INDICATION
     Route: 048
     Dates: start: 20110104, end: 20110110
  14. QUETIAPIN AL [Concomitant]
     Indication: PRODUCT USED FOR UNKNOWN INDICATION
     Dates: start: 20110125
  15. ABILIFY [Interacting]
     Active Substance: ARIPIPRAZOLE
     Route: 048
     Dates: start: 20110115
  16. ABILIFY [Interacting]
     Active Substance: ARIPIPRAZOLE
     Route: 048
     Dates: start: 20110118, end: 20110127
  17. ABILIFY [Interacting]
     Active Substance: ARIPIPRAZOLE
     Route: 048
     Dates: start: 20110205
  18. LORAZEPAM. [Concomitant]
     Active Substance: LORAZEPAM
     Indication: PRODUCT USED FOR UNKNOWN INDICATION
     Dates: start: 20101226
  19. SOLIAN [Interacting]
     Active Substance: AMISULPRIDE
     Route: 048
     Dates: start: 20110111, end: 20110117
  20. CITALOPRAM [Suspect]
     Active Substance: CITALOPRAM HYDROBROMIDE
     Indication: PRODUCT USED FOR UNKNOWN INDICATION
     Route: 048
     Dates: start: 20101226
  21. SOLIAN [Interacting]
     Active Substance: AMISULPRIDE
     Route: 048
     Dates: start: 20110119
  22. ABILIFY [Interacting]
     Active Substance: ARIPIPRAZOLE
     Indication: PRODUCT USED FOR UNKNOWN INDICATION
     Route: 048
     Dates: start: 20110112

REACTIONS (2)
  - Drug interaction [Unknown]
  - Tremor [Recovering/Resolving]

NARRATIVE: CASE EVENT DATE: 20110104
